FAERS Safety Report 9303132 (Version 2)
Quarter: 2013Q4

REPORT INFORMATION
  Report Type: Spontaneous
  Country: GB (occurrence: GB)
  Receive Date: 20130522
  Receipt Date: 20131208
  Transmission Date: 20140711
  Serious: Yes (Hospitalization)
  Sender: FDA-Public Use
  Company Number: GB-TEVA-405681ISR

PATIENT
  Age: 78 Year
  Sex: Male

DRUGS (13)
  1. METFORMIN [Suspect]
     Indication: TYPE 2 DIABETES MELLITUS
  2. PARACETAMOL [Suspect]
  3. NOVORAPID [Suspect]
     Indication: TYPE 2 DIABETES MELLITUS
  4. INSULATARD [Suspect]
     Indication: TYPE 2 DIABETES MELLITUS
  5. STATIN [Concomitant]
  6. SAXAGLIPTIN [Concomitant]
     Indication: TYPE 2 DIABETES MELLITUS
     Route: 048
     Dates: start: 20101216, end: 20111101
  7. SAXAGLIPTIN [Concomitant]
     Indication: TYPE 2 DIABETES MELLITUS
     Route: 048
     Dates: start: 20111215
  8. BUMETANIDE [Concomitant]
     Dates: start: 20110708
  9. SERTRALINE [Concomitant]
     Dates: start: 20110912
  10. BETA BLOCKERS [Concomitant]
  11. NITRATES [Concomitant]
  12. ANGIOTENSIN CONVERTING ENZYME INHIBITOR [Concomitant]
  13. ADENOSINE DIPHOSPHATE ANTAGONIST [Concomitant]

REACTIONS (1)
  - Gastrooesophageal reflux disease [Recovered/Resolved]
